FAERS Safety Report 7822269-3 (Version None)
Quarter: 2011Q4

REPORT INFORMATION
  Report Type: 
  Country: None (occurrence: None)
  Receive Date: 20111018
  Receipt Date: 20110128
  Transmission Date: 20120403
  Serious: No
  Sender: FDA-Public Use
  Company Number: US-ASTRAZENECA-2011SE05427

PATIENT
  Age: 905 Month
  Sex: Male

DRUGS (14)
  1. NEXIUM [Concomitant]
     Indication: GASTRIC ULCER
  2. BISOPROLOL FUMARATE [Concomitant]
     Indication: HYPERTENSION
  3. ASPIRIN [Concomitant]
  4. IRON [Concomitant]
  5. LOSARTAN POTASSIUM [Concomitant]
     Indication: HYPERTENSION
  6. M.V.I. [Concomitant]
  7. HYDROCHLOROTHIAZIDE [Concomitant]
     Indication: HYPERTENSION
  8. CRESTOR [Concomitant]
     Indication: HYPERCHOLESTEROLAEMIA
  9. SYMBICORT [Suspect]
     Indication: ASTHMA
     Dosage: 2 PUFFS TWO TIMES A DAY
     Route: 055
     Dates: start: 20110114
  10. PULMICORT FLEXHALER [Suspect]
     Route: 055
  11. CELEBREX [Concomitant]
     Indication: ARTHRITIS
  12. CALCIUM WITH VITAMIN D [Concomitant]
  13. GLUCOSAMINE, CHONDROTININ AND MSN [Concomitant]
     Indication: ARTHRITIS
  14. VIAGRA [Concomitant]

REACTIONS (1)
  - HAEMORRHOIDS [None]
